FAERS Safety Report 14185154 (Version 1)
Quarter: 2017Q4

REPORT INFORMATION
  Report Type: Spontaneous
  Country: US (occurrence: US)
  Receive Date: 20171111
  Receipt Date: 20171111
  Transmission Date: 20180321
  Serious: Yes (Hospitalization)
  Sender: FDA-Public Use
  Company Number: None

PATIENT
  Age: 92 Year
  Sex: Male
  Weight: 90 kg

DRUGS (1)
  1. SCOPOLAMINE [Suspect]
     Active Substance: SCOPOLAMINE
     Indication: DIZZINESS
     Dosage: ?          QUANTITY:1 PATCH;?
     Route: 062
     Dates: start: 20171111

REACTIONS (2)
  - Confusional state [None]
  - Fall [None]

NARRATIVE: CASE EVENT DATE: 20171111
